FAERS Safety Report 8907595 (Version 1)
Quarter: 2012Q4

REPORT INFORMATION
  Report Type: 
  Country: US (occurrence: US)
  Receive Date: 20121113
  Receipt Date: 20121113
  Transmission Date: 20130627
  Serious: Yes (Other)
  Sender: FDA-Public Use
  Company Number: US-PFIZER INC-2012283375

PATIENT
  Age: 48 Year
  Sex: Female
  Weight: 131.97 kg

DRUGS (8)
  1. PRISTIQ [Suspect]
     Indication: DEPRESSION
     Dosage: 50 mg, 1x/day
     Route: 048
     Dates: start: 2012, end: 201210
  2. EFFEXOR [Suspect]
     Indication: DEPRESSION
     Dosage: UNK
     Route: 048
  3. EFFEXOR [Suspect]
     Dosage: 37.5 mg, 1x/day
     Route: 048
     Dates: start: 201210
  4. AMITRIPTYLINE [Concomitant]
     Indication: SLEEP PROBLEM
     Dosage: 50 mg, 1x/day
  5. DIVALPROEX [Concomitant]
     Indication: BIPOLAR DISORDER
     Dosage: 500 mg, 2x/day
  6. OMEPRAZOLE [Concomitant]
     Dosage: 20 mg, 1x/day
  7. XANAX [Concomitant]
     Dosage: UNK
  8. SIMVASTATIN [Concomitant]
     Dosage: 20 mg, UNK

REACTIONS (2)
  - Postmenopausal haemorrhage [Unknown]
  - Drug intolerance [Unknown]
